FAERS Safety Report 10101893 (Version 2)
Quarter: 2014Q2

REPORT INFORMATION
  Report Type: Spontaneous
  Country: US (occurrence: US)
  Receive Date: 20140424
  Receipt Date: 20140509
  Transmission Date: 20141212
  Serious: Yes (Hospitalization, Other)
  Sender: FDA-Public Use
  Company Number: US-CELGENEUS-163-21880-14043450

PATIENT
  Age: 73 Year
  Sex: Female

DRUGS (1)
  1. REVLIMID [Suspect]
     Indication: PLASMA CELL MYELOMA
     Dosage: 10 MILLIGRAM
     Route: 048
     Dates: start: 20140404, end: 20140422

REACTIONS (6)
  - Delirium [Not Recovered/Not Resolved]
  - Haematuria [Unknown]
  - Confusional state [Not Recovered/Not Resolved]
  - Dehydration [Unknown]
  - Pyrexia [Unknown]
  - Urinary tract infection [Unknown]
